FAERS Safety Report 17443358 (Version 1)
Quarter: 2020Q1

REPORT INFORMATION
  Report Type: Spontaneous
  Country: US (occurrence: US)
  Receive Date: 20200220
  Receipt Date: 20200220
  Transmission Date: 20200409
  Serious: Yes (Death)
  Sender: FDA-Public Use
  Company Number: None

PATIENT
  Age: 36 Year
  Sex: Female

DRUGS (4)
  1. IRON [Concomitant]
     Active Substance: IRON
  2. VIT D [Concomitant]
     Active Substance: VITAMIN D NOS
  3. MULPLETA [Suspect]
     Active Substance: LUSUTROMBOPAG
     Route: 048
  4. MULTIPLE VIT TAB [Concomitant]

REACTIONS (1)
  - Death [None]

NARRATIVE: CASE EVENT DATE: 20200211
